FAERS Safety Report 9281334 (Version 1)
Quarter: 2013Q2

REPORT INFORMATION
  Report Type: Spontaneous
  Country: IT (occurrence: None)
  Receive Date: 20130502
  Receipt Date: 20130502
  Transmission Date: 20140414
  Serious: Yes (Other)
  Sender: FDA-Public Use
  Company Number: IT-1197979

PATIENT
  Age: 49 Year
  Sex: Female

DRUGS (2)
  1. TOBRADEX [Suspect]
     Indication: POSTOPERATIVE CARE
     Route: 047
  2. ACYCLOVIR [Concomitant]

REACTIONS (4)
  - Hypopyon [None]
  - Ulcerative keratitis [None]
  - Eye inflammation [None]
  - Conjunctival hyperaemia [None]
